FAERS Safety Report 6119965-5 (Version None)
Quarter: 2009Q1

REPORT INFORMATION
  Report Type: 
  Country: None (occurrence: None)
  Receive Date: 20090316
  Receipt Date: 20090310
  Transmission Date: 20090719
  Serious: Yes (Death, Other)
  Sender: FDA-Public Use
  Company Number: JP-WYE-H08553609

PATIENT
  Age: 61 Year
  Sex: Female

DRUGS (1)
  1. GEMTUZUMAB OZOGAMICIN [Suspect]
     Indication: MYELOID LEUKAEMIA
     Dosage: 9 MG/M^2 ON DAY 1 AND 15
     Route: 041

REACTIONS (4)
  - CONDITION AGGRAVATED [None]
  - NEUTROPENIA [None]
  - PNEUMONIA [None]
  - THROMBOCYTOPENIA [None]
